FAERS Safety Report 15427970 (Version 6)
Quarter: 2018Q4

REPORT INFORMATION
  Report Type: Report from Study
  Country: SG (occurrence: SG)
  Receive Date: 20180926
  Receipt Date: 20181217
  Transmission Date: 20190204
  Serious: Yes (Hospitalization)
  Sender: FDA-Public Use
  Company Number: SG-ROCHE-2174911

PATIENT
  Age: 64 Year
  Sex: Male
  Weight: 60.5 kg

DRUGS (2)
  1. ATEZOLIZUMAB. [Suspect]
     Active Substance: ATEZOLIZUMAB
     Indication: NON-SMALL CELL LUNG CANCER
     Dosage: DATE OF LAST DOSE OF ATEZOLIZUMAB PRIOR TO ADVERSE EVENT  AND SERIOUS ADVERSE EVENT (16:22): 20/AUG/
     Route: 042
     Dates: start: 20180806
  2. RO 6874281 (FAP IL2V MAB) [Suspect]
     Active Substance: RO-6874281
     Indication: NON-SMALL CELL LUNG CANCER
     Dosage: DATE OF MOST RECENT DOSE OF RO6874281 PRIOR TO ADVERSE EVENT AND SERIOUS ADVERSE EVENT (18:29): 20/A
     Route: 042
     Dates: start: 20180806

REACTIONS (1)
  - Systemic immune activation [Recovered/Resolved]

NARRATIVE: CASE EVENT DATE: 20180820
